FAERS Safety Report 4407209-1 (Version None)
Quarter: 2004Q3

REPORT INFORMATION
  Report Type: 
  Country: None (occurrence: None)
  Receive Date: 20040721
  Receipt Date: 20040701
  Transmission Date: 20050211
  Serious: Yes (Hospitalization, Disabling)
  Sender: FDA-Public Use
  Company Number: US96122752A

PATIENT
  Age: 57 Year
  Sex: Female
  Weight: 91 kg

DRUGS (5)
  1. HUMULIN R [Suspect]
     Dosage: 50 U DAY
  2. HUMULIN N [Suspect]
     Dosage: 25 U/2 DAY
     Dates: start: 19840601
  3. HUMULIN 70/30 [Suspect]
     Indication: DIABETES MELLITUS
     Dosage: 77 U/ 1 DAY
     Dates: start: 19960312
  4. TENORMIN [Concomitant]
  5. NORGESIC (NORGESIC FORTE) [Concomitant]

REACTIONS (12)
  - ANKLE FRACTURE [None]
  - ARTHRITIS INFECTIVE [None]
  - BACK DISORDER [None]
  - BLOOD GLUCOSE INCREASED [None]
  - BODY HEIGHT DECREASED [None]
  - BONE INFECTION [None]
  - DRUG EFFECT DECREASED [None]
  - LEG AMPUTATION [None]
  - MACULAR DEGENERATION [None]
  - PHARMACEUTICAL PRODUCT COMPLAINT [None]
  - RETINOPATHY [None]
  - WHEELCHAIR USER [None]
